FAERS Safety Report 15652483 (Version 1)
Quarter: 2018Q4

REPORT INFORMATION
  Report Type: Spontaneous
  Country: US (occurrence: US)
  Receive Date: 20181123
  Receipt Date: 20181123
  Transmission Date: 20190205
  Serious: No
  Sender: FDA-Public Use
  Company Number: US-FOUNDATIONCONSUMERHC-2018-US-015759

PATIENT
  Age: 17 Year
  Sex: Female

DRUGS (2)
  1. PLAN B ONE-STEP [Suspect]
     Active Substance: LEVONORGESTREL
     Indication: POST COITAL CONTRACEPTION
     Dosage: 1.5MG
     Route: 048
     Dates: start: 20180904, end: 20180904
  2. UNSPECIFID DAILY BIRTH CONTROL [Suspect]
     Active Substance: UNSPECIFIED INGREDIENT
     Dosage: ONCE DAILY
     Dates: start: 20180830

REACTIONS (4)
  - Nausea [Recovered/Resolved]
  - Pollakiuria [Unknown]
  - Dysmenorrhoea [Unknown]
  - Vomiting [Recovered/Resolved]

NARRATIVE: CASE EVENT DATE: 20180909
